FAERS Safety Report 4556423-3 (Version None)
Quarter: 2005Q1

REPORT INFORMATION
  Report Type: 
  Country: None (occurrence: None)
  Receive Date: 20050114
  Receipt Date: 20050107
  Transmission Date: 20050727
  Serious: Yes (Life-Threatening)
  Sender: FDA-Public Use
  Company Number: 2005SE00118

PATIENT
  Age: 55 Year
  Sex: Male

DRUGS (4)
  1. SEROQUEL [Suspect]
     Indication: MENTAL DISORDER
     Dosage: 50 MG QD PO
     Route: 048
     Dates: start: 20050106, end: 20050107
  2. REMERON [Suspect]
     Indication: INSOMNIA
     Dosage: 15 MG QD PO
     Route: 048
     Dates: start: 20050106, end: 20050107
  3. MERONEM [Concomitant]
  4. FLUDEX - SLOW RELEASE [Concomitant]

REACTIONS (2)
  - CARDIO-RESPIRATORY ARREST [None]
  - SYNCOPE VASOVAGAL [None]
